FAERS Safety Report 7893131-5 (Version None)
Quarter: 2011Q4

REPORT INFORMATION
  Report Type: 
  Country: None (occurrence: None)
  Receive Date: 20111104
  Receipt Date: 20111024
  Transmission Date: 20120403
  Serious: Yes (Other)
  Sender: FDA-Public Use
  Company Number: CA-JNJFOC-20111011205

PATIENT
  Sex: Female
  Weight: 63.4 kg

DRUGS (5)
  1. VITAMIN B-12 [Concomitant]
  2. REMICADE [Suspect]
     Indication: CROHN'S DISEASE
     Dosage: HAS HAD 15 INFUSIONS
     Route: 042
  3. IRON [Concomitant]
  4. CODEINE SULFATE [Concomitant]
  5. REMICADE [Suspect]
     Route: 042

REACTIONS (3)
  - FREQUENT BOWEL MOVEMENTS [None]
  - THERAPEUTIC RESPONSE DECREASED [None]
  - ABDOMINAL PAIN UPPER [None]
